FAERS Safety Report 5794587-4 (Version None)
Quarter: 2008Q2

REPORT INFORMATION
  Report Type: 
  Country: None (occurrence: None)
  Receive Date: 20080627
  Receipt Date: 20080627
  Transmission Date: 20081010
  Serious: Yes (Hospitalization)
  Sender: FDA-Public Use
  Company Number: None

PATIENT
  Sex: Female
  Weight: 65.7716 kg

DRUGS (4)
  1. LABETALOL HCL [Suspect]
     Indication: PALPITATIONS
     Dosage: PO 1ST DOSE
     Route: 048
     Dates: start: 20071119
  2. ACEBUTOLOL [Concomitant]
  3. LIPITOR [Concomitant]
  4. NEXIUM [Concomitant]

REACTIONS (2)
  - HYPOTENSION [None]
  - PRESYNCOPE [None]
